FAERS Safety Report 13765764 (Version 1)
Quarter: 2017Q3

REPORT INFORMATION
  Report Type: Report from Study
  Country: US (occurrence: US)
  Receive Date: 20170718
  Receipt Date: 20170718
  Transmission Date: 20171127
  Serious: Yes (Other)
  Sender: FDA-Public Use
  Company Number: US-JAZZ-2017-US-008726

PATIENT
  Sex: Male

DRUGS (16)
  1. PREVACID [Concomitant]
     Active Substance: LANSOPRAZOLE
  2. PRISTIQ EXTENDED-RELEASE [Concomitant]
     Active Substance: DESVENLAFAXINE SUCCINATE
  3. XYREM [Suspect]
     Active Substance: SODIUM OXYBATE
     Indication: NARCOLEPSY
     Dosage: 3 G, BID
     Route: 048
     Dates: start: 201610, end: 201610
  4. XYREM [Suspect]
     Active Substance: SODIUM OXYBATE
     Dosage: 4.5 G, BID
     Route: 048
     Dates: start: 201610, end: 2016
  5. XYREM [Suspect]
     Active Substance: SODIUM OXYBATE
     Dosage: 3 G, QD
     Route: 048
     Dates: start: 201705
  6. FISH OIL                           /00492901/ [Concomitant]
     Active Substance: COD LIVER OIL
  7. FLOMAX [Concomitant]
     Active Substance: TAMSULOSIN HYDROCHLORIDE
  8. PROVIGIL [Concomitant]
     Active Substance: MODAFINIL
  9. VIAGRA [Concomitant]
     Active Substance: SILDENAFIL CITRATE
  10. XYREM [Suspect]
     Active Substance: SODIUM OXYBATE
     Dosage: 3 G, BID
     Route: 048
     Dates: start: 201705
  11. NASACORT ALLERGY 24HR [Concomitant]
     Active Substance: TRIAMCINOLONE ACETONIDE
  12. ALLEGRA ALLERGY [Concomitant]
     Active Substance: FEXOFENADINE HYDROCHLORIDE
  13. DICLOFENAC SODICO                  /00372301/ [Concomitant]
  14. HYOSCYAMINE                        /00064702/ [Concomitant]
  15. VITAMIN D                          /00107901/ [Concomitant]
     Active Substance: ERGOCALCIFEROL
  16. NUVIGIL [Concomitant]
     Active Substance: ARMODAFINIL

REACTIONS (3)
  - Feeling abnormal [Unknown]
  - Unevaluable event [Unknown]
  - Surgery [Unknown]

NARRATIVE: CASE EVENT DATE: 2017
